FAERS Safety Report 5387099-3 (Version None)
Quarter: 2007Q3

REPORT INFORMATION
  Report Type: 
  Country: None (occurrence: None)
  Receive Date: 20070711
  Receipt Date: 20070705
  Transmission Date: 20080115
  Serious: Yes (Hospitalization)
  Sender: FDA-Public Use
  Company Number: 2007BI012074

PATIENT
  Age: 67 Year
  Sex: Female

DRUGS (13)
  1. AVONEX [Suspect]
     Indication: MULTIPLE SCLEROSIS
     Dosage: 30 UG;QW;IM
     Route: 030
     Dates: start: 20041109
  2. KLONOPIN [Concomitant]
  3. COUMADIN [Concomitant]
  4. NORVASC [Concomitant]
  5. ACIPHEX [Concomitant]
  6. MIRALAX [Concomitant]
  7. DETROL [Concomitant]
  8. TENORMIN [Concomitant]
  9. TRAMADOL HCL [Concomitant]
  10. REQUIP [Concomitant]
  11. AMITRIPTYLINE HCL [Concomitant]
  12. MONOPRIL [Concomitant]
  13. DIPROLENE [Concomitant]

REACTIONS (1)
  - CELLULITIS [None]
